FAERS Safety Report 7786417-6 (Version None)
Quarter: 2011Q3

REPORT INFORMATION
  Report Type: 
  Country: None (occurrence: None)
  Receive Date: 20110929
  Receipt Date: 20110922
  Transmission Date: 20111222
  Serious: Yes (Other)
  Sender: FDA-Public Use
  Company Number: TW-ROXANE LABORATORIES, INC.-2011-RO-01335RO

PATIENT
  Age: 25 Year
  Sex: Male

DRUGS (4)
  1. ZOLPIDEM [Suspect]
     Route: 048
  2. ZOLPIDEM [Suspect]
     Indication: INSOMNIA
     Route: 048
  3. ZOLPIDEM [Suspect]
     Indication: ANXIETY
     Route: 048
  4. PAROXETINE HCL [Suspect]
     Indication: MAJOR DEPRESSION

REACTIONS (8)
  - DRUG DEPENDENCE [None]
  - VOMITING [None]
  - ANXIETY [None]
  - NAUSEA [None]
  - DEPRESSED MOOD [None]
  - CHEST DISCOMFORT [None]
  - INSOMNIA [None]
  - DIZZINESS [None]
